FAERS Safety Report 11510948 (Version 2)
Quarter: 2015Q3

REPORT INFORMATION
  Report Type: Report from Study
  Country: AR (occurrence: AR)
  Receive Date: 20150915
  Receipt Date: 20150917
  Transmission Date: 20151125
  Serious: Yes (Other)
  Sender: FDA-Public Use
  Company Number: PHHY2015AR103922

PATIENT
  Age: 77 Year
  Sex: Male

DRUGS (1)
  1. DIOVAN [Suspect]
     Active Substance: VALSARTAN
     Indication: HYPERTENSION
     Dosage: 4 DF, QD
     Route: 065

REACTIONS (5)
  - Aphonia [Recovering/Resolving]
  - Dysphonia [Recovered/Resolved]
  - Cough [Recovered/Resolved]
  - Aortic valve stenosis [Unknown]
  - Pain [Unknown]

NARRATIVE: CASE EVENT DATE: 20150823
